FAERS Safety Report 9165179 (Version 1)
Quarter: 2013Q1

REPORT INFORMATION
  Report Type: Spontaneous
  Country: FR (occurrence: None)
  Receive Date: 20130228
  Receipt Date: 20130228
  Transmission Date: 20140127
  Serious: Yes (Hospitalization)
  Sender: FDA-Public Use
  Company Number: 1612863

PATIENT
  Age: 60 Year
  Sex: Male

DRUGS (1)
  1. DOCETAXEL [Suspect]
     Indication: METASTATIC BRONCHIAL CARCINOMA
     Dosage: 6.1905 MG (130 MG, 1 IN 3 WEEKS), UNKNOWN
     Route: 042
     Dates: start: 20130122, end: 20130122

REACTIONS (1)
  - Purpura [None]
